FAERS Safety Report 15506219 (Version 1)
Quarter: 2018Q4

REPORT INFORMATION
  Report Type: Spontaneous
  Country: CN (occurrence: CN)
  Receive Date: 20181016
  Receipt Date: 20181016
  Transmission Date: 20190205
  Serious: Yes (Other)
  Sender: FDA-Public Use
  Company Number: CN-UCBSA-2018045899

PATIENT
  Age: 55 Year
  Sex: Male
  Weight: 80 kg

DRUGS (12)
  1. KEPPRA [Suspect]
     Active Substance: LEVETIRACETAM
     Indication: EPILEPSY
     Dosage: 1 DF, ONCE DAILY (QD)
     Route: 048
  2. LAMICTAL [Suspect]
     Active Substance: LAMOTRIGINE
     Dosage: 2 DF, ONCE DAILY (QD)
     Route: 048
  3. LAMICTAL [Suspect]
     Active Substance: LAMOTRIGINE
     Dosage: 5 DF, ONCE DAILY (QD)
     Route: 048
  4. DEPAKINE [Suspect]
     Active Substance: VALPROATE SODIUM
     Dosage: GRADUAL INCREASE
     Route: 048
  5. DEPAKINE [Suspect]
     Active Substance: VALPROATE SODIUM
     Dosage: 2 DF, ONCE DAILY (QD)
     Route: 048
  6. DEPAKINE [Suspect]
     Active Substance: VALPROATE SODIUM
     Indication: EPILEPSY
     Dosage: 0.5 DF, ONCE DAILY (QD)
     Route: 048
  7. LAMICTAL [Suspect]
     Active Substance: LAMOTRIGINE
     Dosage: ONE QUARTER TABLET INCREASED FOR EVERY 10 DAYS
     Route: 048
  8. LAMICTAL [Suspect]
     Active Substance: LAMOTRIGINE
     Dosage: INCREASED AGAIN FOR EVERY 10 DAYS
     Route: 048
  9. KEPPRA [Suspect]
     Active Substance: LEVETIRACETAM
     Dosage: 4 DF, ONCE DAILY (QD)
     Route: 048
  10. KEPPRA [Suspect]
     Active Substance: LEVETIRACETAM
     Dosage: 2 DF, ONCE DAILY (QD)
     Route: 048
  11. KEPPRA [Suspect]
     Active Substance: LEVETIRACETAM
     Dosage: GRADUAL DOSE INCREASE TO 4 TABLET ONCE DAILY
     Route: 048
  12. LAMICTAL [Suspect]
     Active Substance: LAMOTRIGINE
     Indication: EPILEPSY
     Dosage: 12.5 MG, ONCE DAILY (QD); STRENGTH: 50MG
     Route: 048

REACTIONS (5)
  - Glassy eyes [Unknown]
  - Petit mal epilepsy [Not Recovered/Not Resolved]
  - Electroencephalogram abnormal [Not Recovered/Not Resolved]
  - Depressed level of consciousness [Unknown]
  - Drug ineffective [Unknown]
